FAERS Safety Report 4532386-1 (Version None)
Quarter: 2004Q4

REPORT INFORMATION
  Report Type: 
  Country: None (occurrence: None)
  Receive Date: 20041217
  Receipt Date: 20041215
  Transmission Date: 20050328
  Serious: Yes (Hospitalization)
  Sender: FDA-Public Use
  Company Number: A400803002/AKO-4674-AE

PATIENT
  Age: 63 Year
  Sex: Male
  Weight: 63.5036 kg

DRUGS (1)
  1. FENTANYL [Suspect]
     Dates: start: 20030201

REACTIONS (2)
  - CARDIAC ARREST [None]
  - NERVOUS SYSTEM DISORDER [None]
